FAERS Safety Report 11273821 (Version 1)
Quarter: 2015Q3

REPORT INFORMATION
  Report Type: Report from Study
  Country: MX (occurrence: MX)
  Receive Date: 20150715
  Receipt Date: 20150715
  Transmission Date: 20151125
  Serious: Yes (Death)
  Sender: FDA-Public Use
  Company Number: MX-BRISTOL-MYERS SQUIBB COMPANY-BMS-2015-045045

PATIENT
  Age: 50 Year
  Sex: Male
  Weight: 40 kg

DRUGS (1)
  1. IPILIMUMAB [Suspect]
     Active Substance: IPILIMUMAB
     Indication: PRODUCT USED FOR UNKNOWN INDICATION
     Dosage: 4 DF, Q3WK
     Route: 065
     Dates: start: 20150608, end: 20150629

REACTIONS (1)
  - Death [Fatal]

NARRATIVE: CASE EVENT DATE: 20150629
